FAERS Safety Report 4698484-7 (Version None)
Quarter: 2005Q2

REPORT INFORMATION
  Report Type: 
  Country: None (occurrence: None)
  Receive Date: 20050622
  Receipt Date: 20050609
  Transmission Date: 20051028
  Serious: Yes (Other)
  Sender: FDA-Public Use
  Company Number: 2005087957

PATIENT
  Age: 46 Year
  Sex: Female

DRUGS (2)
  1. XANAX [Suspect]
     Indication: ILL-DEFINED DISORDER
  2. ALCOHOL (ETHANOL) [Concomitant]

REACTIONS (3)
  - BLOOD ALCOHOL INCREASED [None]
  - MURDER [None]
  - SELF-MEDICATION [None]
